FAERS Safety Report 8132434-6 (Version None)
Quarter: 2012Q1

REPORT INFORMATION
  Report Type: 
  Country: None (occurrence: None)
  Receive Date: 20120207
  Receipt Date: 20120126
  Transmission Date: 20120608
  Serious: Yes (Hospitalization)
  Sender: FDA-Public Use
  Company Number: 2012MA001421

PATIENT
  Age: 56 Year
  Sex: Male

DRUGS (5)
  1. CHLORDIAZEPOXIDE [Suspect]
     Indication: ABSTAINS FROM ALCOHOL
     Dosage: 900 MG;PO
     Route: 048
     Dates: start: 20120103
  2. THIAMINE HCL [Concomitant]
  3. DIAZEPAM [Suspect]
     Indication: WITHDRAWAL SYNDROME
     Dosage: 100 MG;PO
     Route: 048
     Dates: start: 20120103
  4. HALOPERIDOL LACTATE [Suspect]
     Indication: DELIRIUM
     Dosage: 20 MG;IV
     Route: 042
     Dates: start: 20120103
  5. B-COMBIN STAERK [Concomitant]

REACTIONS (4)
  - HYPERCAPNIA [None]
  - RESPIRATORY ACIDOSIS [None]
  - PNEUMONIA HAEMOPHILUS [None]
  - RESPIRATORY FAILURE [None]
